FAERS Safety Report 8642969 (Version 4)
Quarter: 2013Q2

REPORT INFORMATION
  Report Type: Report from Study
  Country: FR (occurrence: FR)
  Receive Date: 20120629
  Receipt Date: 20130624
  Transmission Date: 20140414
  Serious: No
  Sender: FDA-Public Use
  Company Number: FR-JNJFOC-20120610299

PATIENT
  Age: 10 Year
  Sex: Male
  Weight: 31 kg

DRUGS (2)
  1. REMICADE [Suspect]
     Indication: CROHN^S DISEASE
     Route: 042
     Dates: start: 20081213
  2. HUMIRA [Concomitant]
     Indication: CROHN^S DISEASE
     Dates: start: 20091216

REACTIONS (1)
  - Crohn^s disease [Recovered/Resolved]
